FAERS Safety Report 24064331 (Version 2)
Quarter: 2024Q3

REPORT INFORMATION
  Report Type: Spontaneous
  Country: ZA (occurrence: ZA)
  Receive Date: 20240709
  Receipt Date: 20240722
  Transmission Date: 20241016
  Serious: Yes (Hospitalization)
  Sender: MACLEODS
  Company Number: ZA-MACLEODS PHARMA-MAC2024048029

PATIENT

DRUGS (29)
  1. HYDROCHLOROTHIAZIDE\VALSARTAN [Suspect]
     Active Substance: HYDROCHLOROTHIAZIDE\VALSARTAN
     Indication: Hypertension
     Dosage: 80/12.5 MG TAKE ONE TABLET ONCE DAILY
     Route: 048
  2. BISOPROLOL [Suspect]
     Active Substance: BISOPROLOL\BISOPROLOL FUMARATE
     Indication: Hypertension
     Dosage: 2.5 MG TAKE ONE TABLET DAILY
     Route: 048
  3. NEUROBION [Suspect]
     Active Substance: CYANOCOBALAMIN\PYRIDOXINE\THIAMINE
     Indication: Product used for unknown indication
     Dosage: AS DIRECTED
     Route: 048
  4. ACETAMINOPHEN\CAFFEINE\CODEINE\DOXYLAMINE [Suspect]
     Active Substance: ACETAMINOPHEN\CAFFEINE\CODEINE\DOXYLAMINE
     Indication: Product used for unknown indication
     Dosage: AS PER PACKAGE INSERT
     Route: 065
  5. TELMISARTAN [Suspect]
     Active Substance: TELMISARTAN
     Indication: Hypertension
     Dosage: 40 MG TAKE ONE TABLET DAILY
     Route: 048
  6. APIXABAN [Suspect]
     Active Substance: APIXABAN
     Indication: Anticoagulant therapy
     Dosage: 2.5 MG TAKE ONE TABLET TWICE A DAY
     Route: 065
  7. DUTASTERIDE\TAMSULOSIN [Suspect]
     Active Substance: DUTASTERIDE\TAMSULOSIN
     Indication: Prostatomegaly
     Dosage: 0.5/0.4 MG TAKE ONE CAPSULE DAILY
     Route: 048
  8. XARELTO [Suspect]
     Active Substance: RIVAROXABAN
     Indication: Anticoagulant therapy
     Dosage: 15 MG TAKE ONE TABLET DAILY
     Route: 048
  9. OMEPRAZOLE [Suspect]
     Active Substance: OMEPRAZOLE
     Indication: Ulcer
     Dosage: 20 MG TAKE ONE CAPSULE DAILY BEFORE FOOD
     Route: 048
  10. OMEPRAZOLE [Suspect]
     Active Substance: OMEPRAZOLE
     Indication: Gastrooesophageal reflux disease
  11. HYDROCHLOROTHIAZIDE\VALSARTAN [Suspect]
     Active Substance: HYDROCHLOROTHIAZIDE\VALSARTAN
     Indication: Hypertension
     Dosage: 80/12.5 MG TAKE ONE TABLET DAILY
     Route: 048
  12. AVODART [Suspect]
     Active Substance: DUTASTERIDE
     Indication: Benign prostatic hyperplasia
     Dosage: 0.5 MG TAKE ONE CAPSULE DAILY
     Route: 048
  13. CLINDAMYCIN HYDROCHLORIDE [Suspect]
     Active Substance: CLINDAMYCIN HYDROCHLORIDE
     Indication: Product used for unknown indication
     Dosage: 150 MG TAKE ONE CAPSULE FOUR TIMES A DAY
     Route: 048
  14. CLINDAMYCIN [Suspect]
     Active Substance: CLINDAMYCIN
     Indication: Product used for unknown indication
     Dosage: 150 MG TAKE ONE CAPSULE FOUR TIMES A DAY
     Route: 048
  15. MYPAID FORTE [Suspect]
     Active Substance: ACETAMINOPHEN\IBUPROFEN
     Indication: Product used for unknown indication
     Dosage: TAKE ONE TABLET THREE TIMES A DAY, IF NECESSARY
     Route: 048
  16. MYPAID FORTE [Suspect]
     Active Substance: ACETAMINOPHEN\IBUPROFEN
     Dosage: ONE TABLET DAILY
     Route: 048
  17. ACETAMINOPHEN\ASCORBIC ACID\CAFFEINE\CHLORPHENIRAMINE\PHENYLEPHRINE\SA [Suspect]
     Active Substance: ACETAMINOPHEN\ASCORBIC ACID\CAFFEINE\CHLORPHENIRAMINE\PHENYLEPHRINE\SALICYLAMIDE
     Indication: Product used for unknown indication
     Dosage: AS PER PACKAGE INSERT
     Route: 048
  18. DICLOFENAC SODIUM [Suspect]
     Active Substance: DICLOFENAC\DICLOFENAC SODIUM
     Indication: Product used for unknown indication
     Dosage: 50 MG TAKE ONE DISSOLVED IN WATER THREE TIMES A DAY
     Route: 048
  19. VALACYCLOVIR HYDROCHLORIDE [Suspect]
     Active Substance: VALACYCLOVIR HYDROCHLORIDE
     Indication: Herpes simplex
     Dosage: 500 MG TAKE ONE TABLET THREE TIMES A DAY AFTER FOOD
     Route: 048
  20. VALACYCLOVIR HYDROCHLORIDE [Suspect]
     Active Substance: VALACYCLOVIR HYDROCHLORIDE
     Indication: Herpes simplex
  21. SIMVASTATIN [Suspect]
     Active Substance: SIMVASTATIN
     Indication: Blood cholesterol
     Dosage: 20 MG TAKE ONE TABLET DAILY
     Route: 048
  22. ACETAMINOPHEN\ORPHENADRINE CITRATE [Suspect]
     Active Substance: ACETAMINOPHEN\ORPHENADRINE CITRATE
     Indication: Product used for unknown indication
     Dosage: AS PER PACKAGE INSERT
     Route: 048
  23. LOPERAMIDE [Suspect]
     Active Substance: LOPERAMIDE
     Indication: Product used for unknown indication
     Dosage: AS PER PACKAGE INSERT
     Route: 048
  24. MEDROL [Suspect]
     Active Substance: METHYLPREDNISOLONE
     Indication: Product used for unknown indication
     Dosage: 4 MG TAKE ONE TABLET TWICE A DAY ORALLY AFTER FOOD
     Route: 048
  25. CYANOCOBALAMIN [Suspect]
     Active Substance: CYANOCOBALAMIN
     Indication: Product used for unknown indication
     Dosage: 1000 MCG ADMINISTER 1ML AT ONCE
     Route: 048
  26. TERBINAFINE HYDROCHLORIDE [Suspect]
     Active Substance: TERBINAFINE HYDROCHLORIDE
     Indication: Product used for unknown indication
     Dosage: 1 % APPLY TO THE AFFECTED AREAS TWICE A DAY
     Route: 061
  27. BETAHISTINE HYDROCHLORIDE [Suspect]
     Active Substance: BETAHISTINE HYDROCHLORIDE
     Indication: Vertigo
     Dosage: 24 MG TAKE ONE TABLET TWICE A DAY
     Route: 048
  28. ELIQUIS [Suspect]
     Active Substance: APIXABAN
     Indication: Anticoagulant therapy
     Route: 048
  29. DUTASTERIDE\TAMSULOSIN HYDROCHLORIDE [Suspect]
     Active Substance: DUTASTERIDE\TAMSULOSIN HYDROCHLORIDE
     Indication: Prostatomegaly
     Dosage: 0.5/0.4 MG
     Route: 048

REACTIONS (2)
  - Cardiac pacemaker insertion [Unknown]
  - Gastrooesophageal reflux disease [Unknown]
